FAERS Safety Report 7285247-1 (Version None)
Quarter: 2011Q1

REPORT INFORMATION
  Report Type: 
  Country: None (occurrence: None)
  Receive Date: 20110210
  Receipt Date: 20110120
  Transmission Date: 20110831
  Serious: No
  Sender: FDA-Public Use
  Company Number: US-B.I. PHARMACEUTICALS,INC./RIDGEFIELD-2011-BP-02105BP

PATIENT
  Age: 89 Year
  Sex: Female

DRUGS (6)
  1. COREG [Concomitant]
     Indication: PROPHYLAXIS
     Route: 048
  2. DIGOXIN [Concomitant]
     Indication: CARDIAC FAILURE CONGESTIVE
     Route: 048
     Dates: end: 20110120
  3. PRADAXA [Suspect]
     Indication: ATRIAL FIBRILLATION
     Dosage: 150 MG
     Route: 048
     Dates: start: 20110107
  4. LISINOPRIL [Concomitant]
     Indication: PROPHYLAXIS
     Route: 048
  5. LASIX [Suspect]
     Indication: CARDIAC FAILURE CONGESTIVE
     Route: 048
  6. METOLAZONE [Suspect]
     Indication: CARDIAC FAILURE CONGESTIVE
     Route: 048
     Dates: start: 20110105

REACTIONS (2)
  - ERYTHEMA [None]
  - PRURITUS [None]
